FAERS Safety Report 16624103 (Version 2)
Quarter: 2019Q3

REPORT INFORMATION
  Report Type: Report from Study
  Country: FR (occurrence: FR)
  Receive Date: 20190724
  Receipt Date: 20190820
  Transmission Date: 20191004
  Serious: Yes (Other)
  Sender: FDA-Public Use
  Company Number: FR-ACCORD-138216

PATIENT
  Age: 51 Year
  Sex: Male
  Weight: 95 kg

DRUGS (10)
  1. METHOTREXATE. [Suspect]
     Active Substance: METHOTREXATE
     Indication: PSORIASIS
     Dosage: ALSO RECEIVED FROM 14-SEP-2018 TO 30-OCT-2018 AT THE DOSE OF 15 MG (ORAL)
     Route: 058
     Dates: start: 20190122
  2. METHOTREXATE. [Suspect]
     Active Substance: METHOTREXATE
     Indication: PSORIASIS
     Dosage: 20 MG, WEEKLY
     Route: 058
     Dates: start: 20190122, end: 20190308
  3. DERMOVAL [BETAMETHASONE] [Suspect]
     Active Substance: BETAMETHASONE
     Indication: PSORIASIS
     Dosage: LAST DOSE WAS RECEOVED 17
     Route: 003
     Dates: start: 20190122, end: 201904
  4. TELMISARTAN. [Concomitant]
     Active Substance: TELMISARTAN
     Dates: start: 20190124, end: 20190529
  5. ENSTILAR [Concomitant]
     Active Substance: BETAMETHASONE DIPROPIONATE\CALCIPOTRIENE HYDRATE
     Dates: start: 2018, end: 20190122
  6. FOLIC ACID. [Suspect]
     Active Substance: FOLIC ACID
     Indication: PRODUCT USED FOR UNKNOWN INDICATION
     Dosage: 10 MG, 1X/DAY
     Route: 048
     Dates: start: 20180916
  7. DIPROSONE [Suspect]
     Active Substance: BETAMETHASONE DIPROPIONATE
     Indication: PSORIASIS
     Dosage: LAST DOSE RECEIVED ON 17-APR-2019
     Route: 003
     Dates: start: 20190122
  8. METHOTREXATE. [Suspect]
     Active Substance: METHOTREXATE
     Indication: PSORIASIS
     Dosage: 17.5 MG, WEEKLY
     Route: 058
     Dates: start: 20190406
  9. DEXERYL [Concomitant]
     Dates: start: 201903, end: 20190417
  10. TRIDESONIT [Concomitant]
     Active Substance: DESONIDE
     Dosage: RECEIVED FROM 22-JAN-2019
     Dates: start: 2018, end: 20190308

REACTIONS (2)
  - Hepatocellular injury [Recovering/Resolving]
  - Fungal infection [Recovered/Resolved]

NARRATIVE: CASE EVENT DATE: 201811
